FAERS Safety Report 19244307 (Version 1)
Quarter: 2021Q2

REPORT INFORMATION
  Report Type: Spontaneous
  Country: FR (occurrence: FR)
  Receive Date: 20210512
  Receipt Date: 20210512
  Transmission Date: 20210717
  Serious: Yes (Hospitalization, Other)
  Sender: FDA-Public Use
  Company Number: FR-AMGEN-FRASP2021068560

PATIENT
  Age: 33 Year
  Sex: Female

DRUGS (10)
  1. PLASMA [Concomitant]
     Active Substance: HUMAN PLASMA
     Dosage: 60 MILLILITRE PER KILOGRAM, 2/WEEK
  2. POTASSIUM [Concomitant]
     Active Substance: POTASSIUM
     Indication: HYPOKALAEMIA
     Dosage: UNK
  3. CLAIRYG [Concomitant]
     Active Substance: HUMAN IMMUNOGLOBULIN G
     Dosage: 2 UNK
     Route: 042
  4. PLASMA [Concomitant]
     Active Substance: HUMAN PLASMA
     Dosage: 60 MILLILITRE PER KILOGRAM, 5/WEEK
  5. ARANESP [Suspect]
     Active Substance: DARBEPOETIN ALFA
     Indication: HAEMOLYTIC ANAEMIA
     Dosage: 160 MICROGRAM, QWK
     Route: 065
  6. PLASMA [Concomitant]
     Active Substance: HUMAN PLASMA
     Dosage: 60 MILLILITRE PER KILOGRAM, QWK
  7. IRON [Concomitant]
     Active Substance: IRON
     Indication: ANAEMIA
     Dosage: UNK
     Route: 042
  8. VITAMIN B9 [Concomitant]
     Active Substance: FOLIC ACID
     Indication: HAEMOLYTIC ANAEMIA
     Dosage: 5 MILLIGRAM, QD
     Route: 065
  9. ARANESP [Suspect]
     Active Substance: DARBEPOETIN ALFA
     Indication: ANAEMIA
     Dosage: 20 MICROGRAM, QWK
     Route: 065
  10. CLAIRYG [Concomitant]
     Active Substance: HUMAN IMMUNOGLOBULIN G
     Indication: PROPHYLAXIS OF ABORTION
     Dosage: 1 GRAM PER KILOGRAM
     Route: 042

REACTIONS (3)
  - Procedural haemorrhage [Unknown]
  - Maternal exposure during pregnancy [Unknown]
  - Off label use [Unknown]
